FAERS Safety Report 6059258-8 (Version None)
Quarter: 2009Q1

REPORT INFORMATION
  Report Type: 
  Country: None (occurrence: None)
  Receive Date: 20090128
  Receipt Date: 20090116
  Transmission Date: 20090719
  Serious: Yes (Other)
  Sender: FDA-Public Use
  Company Number: 23001L09BRA

PATIENT
  Age: 18 Year
  Sex: Male

DRUGS (1)
  1. INTERFERON BETA (INTERFERON BETA) [Suspect]
     Indication: MULTIPLE SCLEROSIS
     Dosage: 22 MCG, 3 IN 1 WEEKS, SUBCUTANEOUS
     Route: 058
     Dates: start: 20070701

REACTIONS (1)
  - CHRONIC MYELOID LEUKAEMIA [None]
